FAERS Safety Report 13336464 (Version 1)
Quarter: 2017Q1

REPORT INFORMATION
  Report Type: Spontaneous
  Country: US (occurrence: US)
  Receive Date: 20170314
  Receipt Date: 20170314
  Transmission Date: 20170428
  Serious: No
  Sender: FDA-Public Use
  Company Number: US-JAZZ-2017-US-001039

PATIENT
  Sex: Female

DRUGS (21)
  1. XYREM [Suspect]
     Active Substance: SODIUM OXYBATE
     Indication: NARCOLEPSY
     Dosage: DOSE ADJUSTMENT
     Route: 048
     Dates: start: 200702, end: 201109
  2. NATAZIA [Concomitant]
     Active Substance: DIENOGEST\ESTRADIOL VALERATE
  3. XANAX [Concomitant]
     Active Substance: ALPRAZOLAM
  4. MAGNESIUM OXIDE. [Concomitant]
     Active Substance: MAGNESIUM OXIDE
  5. FLONASE                            /00908302/ [Concomitant]
     Active Substance: MOMETASONE FUROATE
  6. XYREM [Suspect]
     Active Substance: SODIUM OXYBATE
     Dosage: 4.5G, BID
     Route: 048
     Dates: start: 201110
  7. DIM                                /03044901/ [Concomitant]
  8. THEANINE [Concomitant]
     Active Substance: THEANINE
  9. ZYRTEC [Concomitant]
     Active Substance: CETIRIZINE HYDROCHLORIDE
  10. DEXEDRINE [Concomitant]
     Active Substance: DEXTROAMPHETAMINE SULFATE
  11. GABA [Concomitant]
     Active Substance: HOMEOPATHICS
  12. FISH OIL CONCENTRATE [Concomitant]
     Active Substance: FISH OIL
  13. MILK THISTLE                       /01131701/ [Concomitant]
  14. XYREM [Suspect]
     Active Substance: SODIUM OXYBATE
     Indication: CATAPLEXY
     Dosage: 3.75G, BID
     Route: 048
     Dates: start: 200611, end: 200701
  15. VITAMIN D                          /00107901/ [Concomitant]
     Active Substance: ERGOCALCIFEROL
  16. NUVIGIL [Concomitant]
     Active Substance: ARMODAFINIL
  17. FLUOXETINE [Concomitant]
     Active Substance: FLUOXETINE HYDROCHLORIDE
  18. FLUOXETINE HCL [Concomitant]
     Active Substance: FLUOXETINE HYDROCHLORIDE
  19. PROGESTERONE. [Concomitant]
     Active Substance: PROGESTERONE
  20. MIRENA [Concomitant]
     Active Substance: LEVONORGESTREL
  21. DHEA [Concomitant]
     Active Substance: PRASTERONE

REACTIONS (6)
  - Premenstrual dysphoric disorder [Recovered/Resolved]
  - Extra dose administered [Unknown]
  - Malaise [Unknown]
  - Vomiting [Unknown]
  - Hormone level abnormal [Unknown]
  - Depression [Recovering/Resolving]
